FAERS Safety Report 10384730 (Version 2)
Quarter: 2014Q3

REPORT INFORMATION
  Report Type: Spontaneous
  Country: US (occurrence: US)
  Receive Date: 20140814
  Receipt Date: 20140814
  Transmission Date: 20150326
  Serious: Yes (Other)
  Sender: FDA-Public Use
  Company Number: US-LUNDBECK-DKLU1101702

PATIENT
  Age: 31 Year
  Sex: Female

DRUGS (2)
  1. SABRIL [Suspect]
     Active Substance: VIGABATRIN
     Indication: EPILEPSY
     Route: 048
     Dates: start: 201111
  2. SABRIL [Suspect]
     Active Substance: VIGABATRIN
     Indication: EPILEPSY
     Dosage: REDUCED 1/2 TAB EVERY 4 DAYS
     Route: 048
     Dates: start: 20140711

REACTIONS (3)
  - Weight increased [Unknown]
  - Convulsion [Unknown]
  - Lethargy [Unknown]

NARRATIVE: CASE EVENT DATE: 20140711
